FAERS Safety Report 8495610-9 (Version None)
Quarter: 2012Q3

REPORT INFORMATION
  Report Type: 
  Country: None (occurrence: None)
  Receive Date: 20120709
  Receipt Date: 20120511
  Transmission Date: 20120928
  Serious: Yes (Other)
  Sender: FDA-Public Use
  Company Number: CA-ROCHE-1083300

PATIENT
  Sex: Female

DRUGS (7)
  1. XOLAIR [Suspect]
     Dates: start: 20120425
  2. VENTOLIN [Concomitant]
  3. XOLAIR [Suspect]
     Dates: start: 20120508
  4. SYMBICORT [Concomitant]
  5. COUMADIN [Concomitant]
  6. NEXIUM [Concomitant]
  7. XOLAIR [Suspect]
     Indication: ASTHMA
     Route: 058
     Dates: start: 20120229

REACTIONS (8)
  - DRUG EFFECT DECREASED [None]
  - INJECTION SITE PAIN [None]
  - DYSPNOEA [None]
  - PAIN IN EXTREMITY [None]
  - NAUSEA [None]
  - DECREASED APPETITE [None]
  - ASTHMA [None]
  - FATIGUE [None]
